FAERS Safety Report 10687342 (Version 2)
Quarter: 2015Q1

REPORT INFORMATION
  Report Type: Spontaneous
  Country: US (occurrence: US)
  Receive Date: 20150102
  Receipt Date: 20150102
  Transmission Date: 20150720
  Serious: Yes (Death, Hospitalization)
  Sender: FDA-Public Use
  Company Number: US-CELGENE-163-21880-08060208

PATIENT
  Age: 44 Year
  Sex: Male

DRUGS (1)
  1. REVLIMID [Suspect]
     Active Substance: LENALIDOMIDE
     Indication: CHRONIC LYMPHOCYTIC LEUKAEMIA
     Dosage: 5 MILLIGRAM
     Route: 048
     Dates: start: 20080325

REACTIONS (6)
  - Meningitis [Fatal]
  - Clostridium difficile infection [Unknown]
  - Pyrexia [Unknown]
  - Graft versus host disease [Fatal]
  - Chronic lymphocytic leukaemia [Fatal]
  - Gait disturbance [Unknown]

NARRATIVE: CASE EVENT DATE: 200805
